FAERS Safety Report 7140397-5 (Version None)
Quarter: 2010Q4

REPORT INFORMATION
  Report Type: 
  Country: None (occurrence: None)
  Receive Date: 20101207
  Receipt Date: 20101129
  Transmission Date: 20110411
  Serious: No
  Sender: FDA-Public Use
  Company Number: US-BIOGENIDEC-2010BI042205

PATIENT
  Age: 48 Year
  Sex: Female

DRUGS (8)
  1. TYSABRI [Suspect]
     Indication: MULTIPLE SCLEROSIS
     Route: 042
     Dates: start: 20100908
  2. BACLOFEN [Concomitant]
     Indication: MYALGIA
     Route: 048
  3. BACLOFEN [Concomitant]
     Indication: MUSCLE SPASMS
     Route: 048
  4. NEURONTIN [Concomitant]
     Indication: MYALGIA
     Route: 048
  5. NEURONTIN [Concomitant]
     Indication: MUSCLE SPASMS
     Route: 048
  6. NEURONTIN [Concomitant]
     Indication: HYPOAESTHESIA
     Route: 048
  7. MOTRIN [Concomitant]
     Indication: MYALGIA
     Route: 048
  8. MOTRIN [Concomitant]
     Indication: MUSCLE SPASMS
     Route: 048

REACTIONS (8)
  - ASTHENIA [None]
  - DECREASED INTEREST [None]
  - FALL [None]
  - FEELING ABNORMAL [None]
  - HEADACHE [None]
  - MUSCULAR WEAKNESS [None]
  - MUSCULOSKELETAL DISCOMFORT [None]
  - VISION BLURRED [None]
